FAERS Safety Report 11263142 (Version 1)
Quarter: 2015Q3

REPORT INFORMATION
  Report Type: Spontaneous
  Country: CA (occurrence: CA)
  Receive Date: 20150711
  Receipt Date: 20150711
  Transmission Date: 20151125
  Serious: Yes (Other)
  Sender: FDA-Public Use
  Company Number: CA-JNJFOC-20150704214

PATIENT
  Age: 24 Month
  Sex: Female
  Weight: 12 kg

DRUGS (2)
  1. POLYSPORIN ECZEMA ESSENTIALS DAILY MOISTURIZING CREAM [Suspect]
     Active Substance: OATMEAL
     Indication: ECZEMA
     Dosage: SQUEEZE
     Route: 061
     Dates: start: 20150705, end: 20150705
  2. HYDROCORTISONE. [Concomitant]
     Active Substance: HYDROCORTISONE
     Route: 065

REACTIONS (6)
  - Application site vesicles [None]
  - Rash [Recovering/Resolving]
  - Blister [Recovering/Resolving]
  - Application site rash [None]
  - Swelling face [Recovering/Resolving]
  - Application site swelling [None]

NARRATIVE: CASE EVENT DATE: 20150705
